FAERS Safety Report 20672120 (Version 2)
Quarter: 2022Q2

REPORT INFORMATION
  Report Type: Spontaneous
  Country: AU (occurrence: AU)
  Receive Date: 20220405
  Receipt Date: 20220505
  Transmission Date: 20220721
  Serious: Yes (Other)
  Sender: FDA-Public Use
  Company Number: AU-ABBVIE-22K-008-4343964-00

PATIENT

DRUGS (4)
  1. HUMIRA [Suspect]
     Active Substance: ADALIMUMAB
     Indication: Product used for unknown indication
     Route: 058
  2. METHOTREXATE [Suspect]
     Active Substance: METHOTREXATE
     Indication: Product used for unknown indication
     Route: 065
  3. SECUKINUMAB [Suspect]
     Active Substance: SECUKINUMAB
     Indication: Product used for unknown indication
     Route: 065
  4. INFLIXIMAB [Suspect]
     Active Substance: INFLIXIMAB
     Indication: Product used for unknown indication
     Route: 065

REACTIONS (8)
  - Pyogenic sterile arthritis pyoderma gangrenosum and acne syndrome [Unknown]
  - Breast hyperplasia [Unknown]
  - Seronegative arthritis [Unknown]
  - Product use in unapproved indication [Unknown]
  - Acne [Unknown]
  - Condition aggravated [Unknown]
  - Pyoderma [Unknown]
  - Drug ineffective [Unknown]
